FAERS Safety Report 6936748-4 (Version None)
Quarter: 2010Q3

REPORT INFORMATION
  Report Type: 
  Country: None (occurrence: None)
  Receive Date: 20100818
  Receipt Date: 20100804
  Transmission Date: 20110219
  Serious: Yes (Hospitalization)
  Sender: FDA-Public Use
  Company Number: AMI0023701

PATIENT
  Age: 68 Year
  Sex: Female

DRUGS (9)
  1. TIMOPTIC [Suspect]
     Indication: OCULAR HYPERTENSION
     Dosage: BID - 046
     Dates: start: 20100513
  2. TIMOPTIC [Suspect]
     Indication: OPEN ANGLE GLAUCOMA
     Dosage: BID - 046
     Dates: start: 20100513
  3. TAFLUPROST 0.0015% (MK-2452) [Suspect]
     Indication: OCULAR HYPERTENSION
     Dosage: QD -046
     Dates: start: 20100513
  4. TAFLUPROST 0.0015% (MK-2452) [Suspect]
     Indication: OPEN ANGLE GLAUCOMA
     Dosage: QD -046
     Dates: start: 20100513
  5. ACTONEL [Concomitant]
  6. COUMADIN [Concomitant]
  7. TOPROL-XL [Concomitant]
  8. ASPIRIN [Concomitant]
  9. VITAMINS [Concomitant]

REACTIONS (2)
  - ATRIAL FIBRILLATION [None]
  - PRESYNCOPE [None]
